FAERS Safety Report 6914086-3 (Version None)
Quarter: 2010Q3

REPORT INFORMATION
  Report Type: 
  Country: None (occurrence: None)
  Receive Date: 20100809
  Receipt Date: 20100804
  Transmission Date: 20110219
  Serious: Yes (Other)
  Sender: FDA-Public Use
  Company Number: JP-BRISTOL-MYERS SQUIBB COMPANY-15221070

PATIENT
  Age: 67 Year
  Sex: Female

DRUGS (2)
  1. PACLITAXEL [Suspect]
     Indication: OVARIAN CANCER
     Dosage: 1DF: 175MG/M SUP(2)(90% OF PACLITAXEL = 210 MG/BODY)5TH COURSE WITHDRAWN
  2. CARBOPLATIN [Suspect]
     Indication: OVARIAN CANCER
     Dosage: 1DF: 500MG/BODY,AUC 5 ALSO RECIEVES ON 20-NOV-2007,600MG/BODY.5TH COURSE WITHDRAWN

REACTIONS (2)
  - GENERALISED OEDEMA [None]
  - SCLERODERMA [None]
